FAERS Safety Report 9415503 (Version 1)
Quarter: 2013Q3

REPORT INFORMATION
  Report Type: Spontaneous
  Country: GB (occurrence: GB)
  Receive Date: 20130723
  Receipt Date: 20130723
  Transmission Date: 20140515
  Serious: Yes (Disabling, Other)
  Sender: FDA-Public Use
  Company Number: GB-PFIZER INC-2013212812

PATIENT
  Age: 39 Year
  Sex: Female
  Weight: 61.2 kg

DRUGS (9)
  1. CHAMPIX [Suspect]
     Dosage: STARTER PACK 1MG AND 500MCG- 25 TABLETS
     Dates: start: 20130212, end: 20130225
  2. CHAMPIX [Suspect]
     Dosage: 1 MG, 2X/DAY, 28 TABLETS ISSUED
     Dates: start: 20130226
  3. VENLAFAXINE HCL [Suspect]
     Indication: TEARFULNESS
     Dosage: UNK
     Dates: start: 201305
  4. VENLAFAXINE HCL [Suspect]
     Indication: SUICIDAL IDEATION
  5. VENLAFAXINE HCL [Suspect]
     Indication: DEPRESSED MOOD
  6. VENLAFAXINE HCL [Suspect]
     Indication: MOOD ALTERED
  7. VENLAFAXINE HCL [Suspect]
     Indication: CRYING
  8. PROPRANOLOL [Concomitant]
     Dosage: 80 MG, 1X/DAY
     Dates: start: 20130607
  9. CARBIMAZOLE [Concomitant]
     Dosage: 20 MG, 2X/DAY
     Dates: start: 20130607

REACTIONS (7)
  - Tearfulness [Unknown]
  - Suicidal ideation [Unknown]
  - Depressed mood [Unknown]
  - Crying [Unknown]
  - Mood altered [Unknown]
  - Hyperthyroidism [Not Recovered/Not Resolved]
  - Emotional distress [Unknown]
